FAERS Safety Report 14317410 (Version 2)
Quarter: 2018Q1

REPORT INFORMATION
  Report Type: Spontaneous
  Country: US (occurrence: US)
  Receive Date: 20171222
  Receipt Date: 20180110
  Transmission Date: 20180509
  Serious: No
  Sender: FDA-Public Use
  Company Number: US-PFIZER INC-2017544858

PATIENT
  Age: 49 Year
  Sex: Female
  Weight: 68.4 kg

DRUGS (9)
  1. VYVANSE [Concomitant]
     Active Substance: LISDEXAMFETAMINE DIMESYLATE
     Indication: ATTENTION DEFICIT/HYPERACTIVITY DISORDER
     Dosage: 40 MG CAPSULE ONCE DAILY BY MOUTH
     Route: 048
  2. AMITIZA [Concomitant]
     Active Substance: LUBIPROSTONE
     Indication: IRRITABLE BOWEL SYNDROME
     Dosage: 8 MCG CAPSULE TWICE DAILY BY MOUTH
     Route: 048
  3. LEVOTHYROXINE. [Concomitant]
     Active Substance: LEVOTHYROXINE
     Indication: HYPOTHYROIDISM
     Dosage: 88 MCG TABLET ONCE DAILY BY MOUTH
     Route: 048
  4. GUANFACINE. [Concomitant]
     Active Substance: GUANFACINE
     Indication: ATTENTION DEFICIT/HYPERACTIVITY DISORDER
     Dosage: 2 MG TABLETS ONCE DAILY BY MOUTH
     Route: 048
  5. OMEPRAZOLE. [Concomitant]
     Active Substance: OMEPRAZOLE
     Indication: GASTROOESOPHAGEAL REFLUX DISEASE
     Dosage: 20 MG CAPSULES. 2 CAPSULES BY MOUTH DAILY
     Route: 048
  6. MULTIVITAMINS /07504101/ [Concomitant]
     Indication: SUPPLEMENTATION THERAPY
     Dosage: 1 TABLET BY MOUTH DAILY
     Route: 048
  7. PREMARIN [Suspect]
     Active Substance: ESTROGENS, CONJUGATED
     Indication: HOT FLUSH
     Dosage: 0.3 MG TABLET; ONE TABLET BY MOUTH ONCE PER DAY
     Route: 048
     Dates: start: 20171216, end: 20171217
  8. PROBIOTIC [Concomitant]
     Active Substance: PROBIOTICS NOS
     Indication: SUPPLEMENTATION THERAPY
     Dosage: 1 CAPSULE BY MOUTH DAILY
     Route: 048
  9. MONTELUKAST [Concomitant]
     Active Substance: MONTELUKAST SODIUM
     Indication: HYPERSENSITIVITY
     Dosage: 10 MG TABLET ONCE DAILY BY MOUTH
     Route: 048

REACTIONS (4)
  - Pruritus generalised [Recovered/Resolved]
  - Urticaria [Recovered/Resolved]
  - Skin discolouration [Recovered/Resolved]
  - Drug hypersensitivity [Recovered/Resolved]

NARRATIVE: CASE EVENT DATE: 20171216
